FAERS Safety Report 24350824 (Version 1)
Quarter: 2024Q3

REPORT INFORMATION
  Report Type: Spontaneous
  Country: RU (occurrence: RU)
  Receive Date: 20240923
  Receipt Date: 20240923
  Transmission Date: 20241017
  Serious: No
  Sender: ROCHE
  Company Number: RU-ROCHE-3520082

PATIENT
  Age: 76 Year
  Sex: Female

DRUGS (6)
  1. TRASTUZUMAB [Suspect]
     Active Substance: TRASTUZUMAB
     Indication: Invasive lobular breast carcinoma
     Dosage: TRASTUZUMAB 6 MG/KG (LOADING DOSE 8 MG/KG), A 21-DAY CYCLE, FOLLOWED BY TRASTUZUMAB 6 MG/KG (21-DAY
     Route: 065
  2. ADO-TRASTUZUMAB EMTANSINE [Suspect]
     Active Substance: ADO-TRASTUZUMAB EMTANSINE
     Indication: Invasive lobular breast carcinoma
     Dosage: 3.6 MG/KG IV DRIP Q3W
     Route: 041
     Dates: start: 202212
  3. DOCETAXEL [Suspect]
     Active Substance: DOCETAXEL\DOCETAXEL ANHYDROUS
     Indication: Invasive lobular breast carcinoma
     Route: 065
  4. FLUOROURACIL [Concomitant]
     Active Substance: FLUOROURACIL
     Route: 065
  5. DOXORUBICIN [Concomitant]
     Active Substance: DOXORUBICIN
     Route: 065
  6. CYCLOPHOSPHAMIDE [Concomitant]
     Active Substance: CYCLOPHOSPHAMIDE
     Route: 065

REACTIONS (3)
  - Thrombocytopenia [Unknown]
  - Disease progression [Unknown]
  - Transaminases increased [Unknown]
